FAERS Safety Report 17454127 (Version 1)
Quarter: 2020Q1

REPORT INFORMATION
  Report Type: Spontaneous
  Country: US (occurrence: US)
  Receive Date: 20200211
  Receipt Date: 20200211
  Transmission Date: 20200409
  Serious: Yes (Other)
  Sender: FDA-Public Use
  Company Number: None

PATIENT
  Age: 73 Year
  Sex: Female

DRUGS (1)
  1. FORTEO [Suspect]
     Active Substance: TERIPARATIDE
     Indication: SENILE OSTEOPOROSIS
     Dosage: ?          OTHER STRENGTH:250MCG/ML;?
     Route: 058
     Dates: start: 20190401

REACTIONS (2)
  - Myocardial infarction [None]
  - Coronary arterial stent insertion [None]

NARRATIVE: CASE EVENT DATE: 20200110
